FAERS Safety Report 21897132 (Version 1)
Quarter: 2023Q1

REPORT INFORMATION
  Report Type: Spontaneous
  Country: US (occurrence: US)
  Receive Date: 20230123
  Receipt Date: 20230123
  Transmission Date: 20230418
  Serious: No
  Sender: FDA-Public Use
  Company Number: US-HISAMITSU PHARMACEUTICAL CO., INC.-2022-NOV-US001171

PATIENT
  Age: 47 Year
  Sex: Male

DRUGS (1)
  1. SECUADO [Suspect]
     Active Substance: ASENAPINE
     Indication: Product used for unknown indication
     Dosage: 5.7 MG, UNKNOWN
     Route: 062

REACTIONS (1)
  - Skin irritation [Unknown]
